FAERS Safety Report 7861740-5 (Version None)
Quarter: 2011Q4

REPORT INFORMATION
  Report Type: 
  Country: None (occurrence: None)
  Receive Date: 20111027
  Receipt Date: 20110930
  Transmission Date: 20120403
  Serious: Yes (Other)
  Sender: FDA-Public Use
  Company Number: CZ-ROCHE-1001174

PATIENT
  Sex: Female

DRUGS (2)
  1. HERCEPTIN [Suspect]
     Dates: start: 20100212
  2. HERCEPTIN [Suspect]
     Indication: BREAST CANCER
     Dates: start: 20090812

REACTIONS (2)
  - CARDIOTOXICITY [None]
  - ATRIAL SEPTAL DEFECT [None]
